FAERS Safety Report 4975470-0 (Version None)
Quarter: 2006Q2

REPORT INFORMATION
  Report Type: 
  Country: None (occurrence: None)
  Receive Date: 20060411
  Receipt Date: 20060329
  Transmission Date: 20061013
  Serious: Yes (Other)
  Sender: FDA-Public Use
  Company Number: 2006034811

PATIENT
  Age: 54 Year
  Sex: Female
  Weight: 48 kg

DRUGS (7)
  1. CELEBREX [Suspect]
     Indication: OSTEOARTHRITIS
     Dosage: 200 MG (200 MG, 1 IN 1 D), ORAL
     Route: 048
     Dates: start: 20000914, end: 20051214
  2. ACETYLSALICYLIC ACID SRT [Concomitant]
  3. ACIMAX (OMEPRAZOLE) [Concomitant]
  4. ENDEP [Concomitant]
  5. PANADEINE FORTE (CODEINE PHOSPHATE, PARACETAMOL) [Concomitant]
  6. PERIACTIN [Concomitant]
  7. TEGRETOL [Concomitant]

REACTIONS (3)
  - CONTUSION [None]
  - GASTROOESOPHAGEAL REFLUX DISEASE [None]
  - INSOMNIA [None]
